FAERS Safety Report 9365831 (Version 3)
Quarter: 2014Q3

REPORT INFORMATION
  Report Type: Report from Study
  Country: US (occurrence: US)
  Receive Date: 20130625
  Receipt Date: 20140710
  Transmission Date: 20150326
  Serious: Yes (Other)
  Sender: FDA-Public Use
  Company Number: PHEH2013US012755

PATIENT
  Age: 10 Year
  Sex: Female

DRUGS (3)
  1. ILARIS [Suspect]
     Active Substance: CANAKINUMAB
     Dosage: 0.8 ML, UNK
     Route: 058
     Dates: start: 20140625
  2. ILARIS [Suspect]
     Active Substance: CANAKINUMAB
     Dosage: 80 MG, UNK
     Route: 058
  3. ILARIS [Suspect]
     Active Substance: CANAKINUMAB
     Dosage: 120 MG, UNK
     Route: 058

REACTIONS (5)
  - Pyrexia [Unknown]
  - Back pain [Unknown]
  - Vomiting [Unknown]
  - Fungal infection [Unknown]
  - Urinary tract infection [Recovered/Resolved]

NARRATIVE: CASE EVENT DATE: 20130429
